FAERS Safety Report 9964342 (Version 1)
Quarter: 2014Q1

REPORT INFORMATION
  Report Type: Report from Study
  Country: LB (occurrence: LB)
  Receive Date: 20140305
  Receipt Date: 20140305
  Transmission Date: 20141002
  Serious: Yes (Death)
  Sender: FDA-Public Use
  Company Number: PHHY2013LB155644

PATIENT
  Age: 72 Year
  Sex: Male

DRUGS (6)
  1. ACLASTA [Suspect]
     Indication: OSTEOPOROSIS
     Dosage: 5 MG, UNK
     Route: 042
  2. CIPRALEX                                /DEN/ [Concomitant]
     Dosage: UNK UKN, UNK
  3. ZOCOR [Concomitant]
     Dosage: UNK UKN, UNK
  4. HUMULIN R [Concomitant]
     Dosage: UNK UKN, UNK
  5. HUMULIN N [Concomitant]
     Dosage: UNK UKN, UNK
  6. LEXOTANIL [Concomitant]
     Dosage: UNK UKN, UNK

REACTIONS (1)
  - Death [Fatal]
